FAERS Safety Report 4330053-0 (Version None)
Quarter: 2004Q1

REPORT INFORMATION
  Report Type: 
  Country: None (occurrence: None)
  Receive Date: 20040329
  Receipt Date: 20040123
  Transmission Date: 20041129
  Serious: No
  Sender: FDA-Public Use
  Company Number: 03P-163-0236339-00

PATIENT
  Age: 78 Year
  Sex: Female
  Weight: 60.3284 kg

DRUGS (9)
  1. HUMIRA [Suspect]
     Indication: RHEUMATOID ARTHRITIS
     Dosage: 40 MG, 1 IN 3 WK; SUBCUTANEOUS (SEE IMAGE)
     Route: 058
     Dates: start: 20030825, end: 20030904
  2. HUMIRA [Suspect]
     Indication: RHEUMATOID ARTHRITIS
     Dosage: 40 MG, 1 IN 3 WK; SUBCUTANEOUS (SEE IMAGE)
     Route: 058
     Dates: start: 20030918, end: 20030918
  3. HUMIRA [Suspect]
     Indication: RHEUMATOID ARTHRITIS
     Dosage: 40 MG, 1 IN 3 WK; SUBCUTANEOUS (SEE IMAGE)
     Route: 058
     Dates: start: 20040121
  4. RABEPRAZOLE SODIUM [Concomitant]
  5. FLECAINIDE ACETATE [Concomitant]
  6. DIGOXIN [Concomitant]
  7. PREDNISONE [Concomitant]
  8. CALCIUM CARBONATE [Concomitant]
  9. ALENDRONATE SODIUM [Concomitant]

REACTIONS (6)
  - ARTHRALGIA [None]
  - ASTHENIA [None]
  - DIARRHOEA [None]
  - FAECAL INCONTINENCE [None]
  - INFECTION [None]
  - NAUSEA [None]
